FAERS Safety Report 4621855-1 (Version None)
Quarter: 2005Q1

REPORT INFORMATION
  Report Type: 
  Country: None (occurrence: None)
  Receive Date: 20050329
  Receipt Date: 20050224
  Transmission Date: 20050727
  Serious: Yes (Life-Threatening, Hospitalization, Disabling)
  Sender: FDA-Public Use
  Company Number: US-BRISTOL-MYERS SQUIBB COMPANY-12876587

PATIENT
  Age: 68 Year
  Sex: Female

DRUGS (4)
  1. PRAVACHOL [Suspect]
  2. BAYCOL [Suspect]
     Indication: HYPERLIPIDAEMIA
     Dosage: DECREASED TO 0.2MG IN JAN-2001
     Route: 048
     Dates: start: 20001101, end: 20010401
  3. LOTENSIN [Concomitant]
     Route: 048
  4. SYNTHROID [Concomitant]

REACTIONS (2)
  - MUSCLE SPASMS [None]
  - MYALGIA [None]
